FAERS Safety Report 19043071 (Version 1)
Quarter: 2021Q1

REPORT INFORMATION
  Report Type: Spontaneous
  Country: US (occurrence: US)
  Receive Date: 20210323
  Receipt Date: 20210323
  Transmission Date: 20210420
  Serious: No
  Sender: FDA-Public Use
  Company Number: US-ALLERGAN-2101269US

PATIENT
  Sex: Female

DRUGS (7)
  1. TEMOVATE [Concomitant]
     Active Substance: CLOBETASOL PROPIONATE
  2. METHOTREXATE. [Concomitant]
     Active Substance: METHOTREXATE
  3. PLAQUENIL                          /00072602/ [Concomitant]
     Active Substance: HYDROXYCHLOROQUINE DIPHOSPHATE
  4. ZOCOR [Concomitant]
     Active Substance: SIMVASTATIN
  5. DURYSTA [Suspect]
     Active Substance: BIMATOPROST
     Indication: OPEN ANGLE GLAUCOMA
     Dosage: 10 ?G, SINGLE
     Route: 031
     Dates: start: 20201123, end: 20201123
  6. FOLIC ACID. [Concomitant]
     Active Substance: FOLIC ACID
  7. LISINOPRIL. [Concomitant]
     Active Substance: LISINOPRIL

REACTIONS (1)
  - Intraocular pressure increased [Unknown]
